FAERS Safety Report 20764277 (Version 1)
Quarter: 2022Q2

REPORT INFORMATION
  Report Type: Spontaneous
  Country: US (occurrence: US)
  Receive Date: 20220428
  Receipt Date: 20220428
  Transmission Date: 20220721
  Serious: No
  Sender: FDA-Public Use
  Company Number: US-PFIZER INC-2021829714

PATIENT
  Sex: Female

DRUGS (1)
  1. DOXYCYCLINE CALCIUM [Suspect]
     Active Substance: DOXYCYCLINE CALCIUM
     Indication: Respiratory tract infection
     Dosage: UNK

REACTIONS (3)
  - Nausea [Unknown]
  - Feeling abnormal [Unknown]
  - Drug hypersensitivity [Unknown]
